FAERS Safety Report 25661167 (Version 2)
Quarter: 2025Q4

REPORT INFORMATION
  Report Type: Report from Study
  Country: CL (occurrence: CL)
  Receive Date: 20250808
  Receipt Date: 20251013
  Transmission Date: 20260119
  Serious: Yes (Other)
  Sender: JOHNSON AND JOHNSON
  Company Number: CL-JNJFOC-20241219297

PATIENT
  Age: 68 Year
  Sex: Male

DRUGS (1)
  1. SIMPONI [Suspect]
     Active Substance: GOLIMUMAB
     Indication: Rheumatoid arthritis
     Dosage: LAST DATE OF ADMINISTRATION ON 26-JUN-2025
     Route: 058
     Dates: start: 20221111

REACTIONS (8)
  - Cataract [Unknown]
  - Rheumatoid arthritis [Unknown]
  - Headache [Unknown]
  - Blood glucose increased [Unknown]
  - Blood glucose decreased [Unknown]
  - Injection related reaction [Recovered/Resolved]
  - Nasopharyngitis [Recovered/Resolved]
  - Panic attack [Unknown]
